FAERS Safety Report 7607622-5 (Version None)
Quarter: 2011Q3

REPORT INFORMATION
  Report Type: 
  Country: None (occurrence: None)
  Receive Date: 20110713
  Receipt Date: 20110201
  Transmission Date: 20111222
  Serious: Yes (Other)
  Sender: FDA-Public Use
  Company Number: PHHY2010AU88420

PATIENT
  Age: 42 Year
  Sex: Female

DRUGS (4)
  1. ESTRADIOL AND NORETHINDRONE ACETATE [Interacting]
     Dosage: UNK
  2. AGOMELATINE [Suspect]
     Dosage: 12.5 MG, QD
     Route: 048
     Dates: start: 20101101, end: 20101101
  3. AGOMELATINE [Suspect]
     Dosage: 6.25 MG, QD
     Route: 048
     Dates: start: 20101101, end: 20101201
  4. AGOMELATINE [Suspect]
     Indication: MAJOR DEPRESSION
     Dosage: 25 MG, QD
     Route: 048
     Dates: start: 20101112, end: 20101101

REACTIONS (5)
  - IRRITABILITY [None]
  - FATIGUE [None]
  - SUICIDAL IDEATION [None]
  - DRUG INTERACTION [None]
  - SOMNOLENCE [None]
